FAERS Safety Report 11778241 (Version 1)
Quarter: 2015Q4

REPORT INFORMATION
  Report Type: Spontaneous
  Country: NO (occurrence: NO)
  Receive Date: 20151125
  Receipt Date: 20151125
  Transmission Date: 20160304
  Serious: Yes (Other)
  Sender: FDA-Public Use
  Company Number: NO-SA-2015SA185697

PATIENT
  Age: 48 Year
  Sex: Male

DRUGS (1)
  1. AUBAGIO [Suspect]
     Active Substance: TERIFLUNOMIDE
     Indication: MULTIPLE SCLEROSIS
     Route: 048
     Dates: start: 2015, end: 20150610

REACTIONS (5)
  - Depression [Unknown]
  - Alopecia [Unknown]
  - Pruritus [Unknown]
  - Suicidal ideation [Unknown]
  - Weight decreased [Unknown]
